FAERS Safety Report 6653004-2 (Version None)
Quarter: 2010Q1

REPORT INFORMATION
  Report Type: 
  Country: None (occurrence: None)
  Receive Date: 20100326
  Receipt Date: 20100315
  Transmission Date: 20100710
  Serious: Yes (Disabling, Other)
  Sender: FDA-Public Use
  Company Number: PHHY2010US11618

PATIENT
  Sex: Female
  Weight: 71 kg

DRUGS (18)
  1. RECLAST [Suspect]
     Indication: OSTEOPOROSIS
     Dosage: 5 MG, ONCE/SINGLE
     Dates: start: 20100216, end: 20100216
  2. ATENOLOL [Concomitant]
     Dosage: 50 MG, Q12H
     Route: 048
     Dates: start: 20100121, end: 20100216
  3. NORVASC [Concomitant]
     Dosage: 5 MG, Q12H
     Route: 048
     Dates: start: 20100121, end: 20100216
  4. SYNTHROID [Concomitant]
     Dosage: 75 UG, QD
     Route: 048
     Dates: start: 20100121, end: 20100216
  5. PROBIOTICS (MICROORGANISMS W/PROBIOTIC ACTION) [Concomitant]
     Dosage: UNK, QOD
     Route: 048
     Dates: start: 20100121, end: 20100216
  6. RANITIDINE [Concomitant]
     Indication: GASTROOESOPHAGEAL REFLUX DISEASE
     Dosage: 150 MG, PRN
     Route: 048
     Dates: start: 20100121, end: 20100216
  7. BABY ASPIRIN [Concomitant]
     Dosage: 81 MG, QD
     Dates: start: 20100121, end: 20100216
  8. CALCIUM [Concomitant]
  9. VITAMIN D [Concomitant]
  10. SALINE [Concomitant]
  11. BUSPIRONE HYDROCHLORIDE [Concomitant]
     Dosage: 5 MG, TID
     Route: 048
  12. BENICAR [Concomitant]
     Dosage: 10 MG, QD
     Route: 048
  13. VITAMIN C [Concomitant]
     Dosage: 1000 MG, TID
     Route: 048
     Dates: start: 20100121, end: 20100216
  14. VITAMIN B1 TAB [Concomitant]
     Dosage: 100 MG, QD
     Route: 048
     Dates: start: 20100121, end: 20100216
  15. FISH OIL [Concomitant]
     Dosage: 1000 MG, QD
     Route: 048
     Dates: start: 20100121, end: 20100216
  16. MULTIVITAMIN ^LAPPE^ [Concomitant]
     Dosage: 1 TABLET. TID
     Route: 048
     Dates: start: 20100121, end: 20100216
  17. INOSITOL [Concomitant]
     Dosage: 650 MG, QD
     Route: 048
     Dates: start: 20100121, end: 20100216
  18. SODIUM CHLORIDE [Concomitant]
     Dosage: UNK, PRN
     Route: 042
     Dates: start: 20100121, end: 20100216

REACTIONS (9)
  - ACTIVITIES OF DAILY LIVING IMPAIRED [None]
  - ARTHROPATHY [None]
  - ASTHENIA [None]
  - CHILLS [None]
  - MUSCULAR WEAKNESS [None]
  - MUSCULOSKELETAL STIFFNESS [None]
  - MYALGIA [None]
  - OEDEMA PERIPHERAL [None]
  - PYREXIA [None]
